FAERS Safety Report 4417598-X (Version None)
Quarter: 2004Q3

REPORT INFORMATION
  Report Type: 
  Country: None (occurrence: None)
  Receive Date: 20040803
  Receipt Date: 20040720
  Transmission Date: 20050211
  Serious: Yes (Hospitalization)
  Sender: FDA-Public Use
  Company Number: 2004-UK-00604UK

PATIENT
  Age: 55 Year
  Sex: Male

DRUGS (2)
  1. MICARDIS [Suspect]
     Indication: HYPERTENSION
     Dosage: 80 MG; PO
     Route: 048
     Dates: start: 20031101, end: 20040501
  2. ASPIRIN [Concomitant]

REACTIONS (7)
  - CHEST PAIN [None]
  - DYSPNOEA EXERTIONAL [None]
  - FATIGUE [None]
  - IRRITABILITY [None]
  - NIGHT SWEATS [None]
  - NIGHTMARE [None]
  - RASH [None]
